FAERS Safety Report 21504163 (Version 1)
Quarter: 2022Q4

REPORT INFORMATION
  Report Type: Spontaneous
  Country: US (occurrence: US)
  Receive Date: 20221025
  Receipt Date: 20221025
  Transmission Date: 20230112
  Serious: Yes (Hospitalization)
  Sender: FDA-Public Use
  Company Number: US-PFIZER INC-202201253234

PATIENT
  Age: 70 Year
  Sex: Male
  Weight: 122.47 kg

DRUGS (1)
  1. XELJANZ [Suspect]
     Active Substance: TOFACITINIB CITRATE
     Indication: Rheumatoid arthritis
     Dosage: 11 MG ONCE A DAY IN THE MORNING
     Route: 048

REACTIONS (1)
  - Intervertebral disc protrusion [Recovering/Resolving]
